FAERS Safety Report 11267024 (Version 2)
Quarter: 2015Q4

REPORT INFORMATION
  Report Type: Spontaneous
  Country: US (occurrence: US)
  Receive Date: 20150713
  Receipt Date: 20151124
  Transmission Date: 20160304
  Serious: Yes (Hospitalization, Other)
  Sender: FDA-Public Use
  Company Number: US-DSJP-DSU-2015-104237

PATIENT

DRUGS (4)
  1. BENICAR HCT [Suspect]
     Active Substance: HYDROCHLOROTHIAZIDE\OLMESARTAN MEDOXOMIL
     Indication: HYPERTENSION
     Dosage: 40-12.5 MG ONCE DAILY
     Route: 048
     Dates: start: 200903, end: 201306
  2. METOPROLOL SUCCINATE. [Concomitant]
     Active Substance: METOPROLOL SUCCINATE
     Indication: PRODUCT USED FOR UNKNOWN INDICATION
     Dosage: 50 MG, BID
     Dates: start: 201301
  3. TERAZOSIN [Concomitant]
     Active Substance: TERAZOSIN\TERAZOSIN HYDROCHLORIDE
     Indication: PRODUCT USED FOR UNKNOWN INDICATION
     Dosage: 5 MG, QD
     Dates: start: 2002
  4. ASPIRIN                            /00002701/ [Concomitant]
     Active Substance: ASPIRIN
     Indication: PRODUCT USED FOR UNKNOWN INDICATION
     Dosage: 81 MG, QD
     Dates: start: 2000

REACTIONS (15)
  - Hypotension [Recovering/Resolving]
  - Coeliac disease [Recovering/Resolving]
  - Polyp [Unknown]
  - Malabsorption [Unknown]
  - Diverticulitis [Unknown]
  - Haemorrhoids [Unknown]
  - Oesophagitis [Unknown]
  - Acute kidney injury [Unknown]
  - Syncope [Unknown]
  - Constipation [Recovering/Resolving]
  - Acquired oesophageal web [Unknown]
  - Gallbladder disorder [Recovering/Resolving]
  - Lethargy [Unknown]
  - Dizziness [Recovering/Resolving]
  - Gastritis [Unknown]

NARRATIVE: CASE EVENT DATE: 201303
